FAERS Safety Report 8305938-0 (Version None)
Quarter: 2012Q1

REPORT INFORMATION
  Report Type: 
  Country: None (occurrence: None)
  Receive Date: 20120326
  Receipt Date: 20111228
  Transmission Date: 20120608
  Serious: Yes (Other)
  Sender: FDA-Public Use
  Company Number: PHEH2011US12647

PATIENT

DRUGS (1)
  1. VIVELLE-DOT [Suspect]
     Dosage: TRANSDERMAL
     Route: 062

REACTIONS (3)
  - MIGRAINE WITH AURA [None]
  - WEIGHT DECREASED [None]
  - SKIN DISORDER [None]
